FAERS Safety Report 10009531 (Version 2)
Quarter: 2014Q2

REPORT INFORMATION
  Report Type: Report from Study
  Country: US (occurrence: US)
  Receive Date: 20140313
  Receipt Date: 20140403
  Transmission Date: 20141212
  Serious: Yes (Hospitalization, Other)
  Sender: FDA-Public Use
  Company Number: US-B.I. PHARMACEUTICALS,INC./RIDGEFIELD-2014-BI-10476BI

PATIENT
  Age: 63 Year
  Sex: Female
  Weight: 70.3 kg

DRUGS (13)
  1. DABIGATRAN [Suspect]
     Indication: ATRIAL FIBRILLATION
     Dosage: 300 MG
     Route: 048
     Dates: start: 201203, end: 20120530
  2. PRINIVIL [Suspect]
     Indication: HYPERTENSION
     Dosage: 40 MG
     Route: 048
     Dates: start: 20110819
  3. LASIX [Suspect]
     Indication: DIURETIC THERAPY
     Dosage: 160 MG
     Route: 048
     Dates: start: 20070301
  4. ROCALTROL [Concomitant]
     Indication: PROPHYLAXIS
     Dosage: 0.5 MCG
     Route: 048
     Dates: start: 20120313
  5. CYMBALTA [Concomitant]
     Indication: DEPRESSION
     Dosage: 20 MG
     Route: 048
  6. NEXIUM [Concomitant]
     Indication: GASTROOESOPHAGEAL REFLUX DISEASE
     Dosage: 40 MG
     Route: 048
     Dates: start: 20090129
  7. ULORIC [Concomitant]
     Indication: GOUT
     Dosage: 40 MG
     Route: 048
     Dates: start: 20110728
  8. FORTEO [Concomitant]
     Indication: OSTEOPOROSIS
     Dosage: FORMULATION: INJECTION, DAILY DOSE: 600 MCG/2.4 ML
     Route: 058
     Dates: start: 20120317
  9. PLAQUENIL [Concomitant]
     Indication: SYSTEMIC LUPUS ERYTHEMATOSUS
     Dosage: 400 MG
     Route: 048
     Dates: start: 20110728
  10. LANTUS [Concomitant]
     Indication: DIABETES MELLITUS
     Dosage: FORMULATION: INJECTION, DAILY DOSE: 100 UNIT/ML-13 UNITS DAILY
     Route: 058
     Dates: start: 20110830
  11. ADCIRCA [Concomitant]
     Indication: HYPERTENSION
     Dosage: 40 MG
     Route: 048
     Dates: start: 20110819
  12. ADCIRCA [Concomitant]
     Indication: OSTEONECROSIS
  13. AMBIEN [Concomitant]
     Indication: SLEEP DISORDER
     Dosage: 5 MG
     Route: 048

REACTIONS (8)
  - Mouth haemorrhage [Recovered/Resolved]
  - Epistaxis [Recovered/Resolved]
  - Rectal haemorrhage [Recovered/Resolved]
  - Fatigue [Recovered/Resolved]
  - Renal failure acute [Not Recovered/Not Resolved]
  - Oesophageal candidiasis [Not Recovered/Not Resolved]
  - Hiatus hernia [Not Recovered/Not Resolved]
  - Haemorrhoids [Not Recovered/Not Resolved]
